FAERS Safety Report 7749425-7 (Version None)
Quarter: 2011Q3

REPORT INFORMATION
  Report Type: 
  Country: None (occurrence: None)
  Receive Date: 20110914
  Receipt Date: 20110906
  Transmission Date: 20111222
  Serious: Yes (Hospitalization)
  Sender: FDA-Public Use
  Company Number: NZ-B.I. PHARMACEUTICALS,INC./RIDGEFIELD-2011-AU-00809AU

PATIENT
  Age: 77 Year
  Sex: Male

DRUGS (1)
  1. PRADAXA [Suspect]
     Dosage: 300 MG
     Dates: start: 20110713

REACTIONS (6)
  - MELAENA [None]
  - DIZZINESS [None]
  - CHEST PAIN [None]
  - ACUTE MYOCARDIAL INFARCTION [None]
  - GASTRIC ULCER [None]
  - DYSPNOEA [None]
